FAERS Safety Report 5988862-8 (Version None)
Quarter: 2008Q4

REPORT INFORMATION
  Report Type: 
  Country: None (occurrence: None)
  Receive Date: 20081210
  Receipt Date: 20081128
  Transmission Date: 20090506
  Serious: Yes (Hospitalization, Other)
  Sender: FDA-Public Use
  Company Number: PHHY2008CA24890

PATIENT
  Sex: Female

DRUGS (11)
  1. DESFERAL [Suspect]
     Indication: HAEMOSIDEROSIS
     Dosage: 2 GM/24 HRS
     Route: 058
     Dates: start: 20070201
  2. FOLIC ACID [Concomitant]
     Route: 048
  3. EFFEXOR [Concomitant]
  4. URSODIOL [Concomitant]
  5. FLUCONAZOLE [Concomitant]
  6. SOLAGE [Concomitant]
  7. FOSAMAX [Concomitant]
  8. CALCIUM W/VITAMIN D NOS [Concomitant]
  9. ACYCLOVIR [Concomitant]
  10. FERRITIN [Concomitant]
     Dosage: UNK
     Dates: start: 20080201
  11. SEPTRA [Concomitant]

REACTIONS (1)
  - PANCREATITIS ACUTE [None]
